FAERS Safety Report 4471576-3 (Version None)
Quarter: 2004Q4

REPORT INFORMATION
  Report Type: 
  Country: None (occurrence: None)
  Receive Date: 20041012
  Receipt Date: 19991019
  Transmission Date: 20050328
  Serious: Yes (Hospitalization)
  Sender: FDA-Public Use
  Company Number: JP-GLAXOSMITHKLINE-B0072316A

PATIENT
  Age: 70 Year
  Sex: Male
  Weight: 67.5 kg

DRUGS (9)
  1. ACYCLOVIR [Suspect]
     Indication: HERPES ZOSTER
     Route: 042
     Dates: start: 19991012, end: 19991014
  2. CALCITRIOL [Concomitant]
     Indication: RENAL OSTEODYSTROPHY
     Dosage: .5UG PER DAY
     Route: 048
     Dates: start: 19990101, end: 19991019
  3. PREDNISOLONE [Concomitant]
     Indication: RHEUMATOID ARTHRITIS
     Dosage: 5MG PER DAY
     Route: 048
     Dates: start: 19990101
  4. BUCILLAMINE [Concomitant]
     Indication: RHEUMATOID ARTHRITIS
     Route: 048
     Dates: start: 19990101
  5. TEPRENONE [Concomitant]
     Indication: GASTRITIS
     Dosage: 50MG TWICE PER DAY
     Route: 048
     Dates: start: 19991012
  6. PRECIPITATED CALCIUM CARBONATE [Concomitant]
     Indication: HYPERPHOSPHATAEMIA
     Dosage: 500MG THREE TIMES PER DAY
     Route: 048
     Dates: start: 19990101
  7. VIDARABINE [Concomitant]
     Indication: HERPES ZOSTER
     Route: 061
     Dates: start: 19991012
  8. DICLOFENAC SODIUM [Concomitant]
     Indication: HERPES ZOSTER
     Dosage: 50MG PER DAY
     Route: 061
     Dates: start: 19991012, end: 19991012
  9. DICLOFENAC SODIUM [Concomitant]
     Dosage: 25MG PER DAY
     Route: 061
     Dates: start: 19991013, end: 19991013

REACTIONS (12)
  - BLOOD PRESSURE DECREASED [None]
  - DISORIENTATION [None]
  - DIZZINESS [None]
  - DRUG TOXICITY [None]
  - DYSARTHRIA [None]
  - HEADACHE [None]
  - HYPOAESTHESIA [None]
  - NEUROSIS [None]
  - PYREXIA [None]
  - SOLILOQUY [None]
  - SPEECH DISORDER [None]
  - VOMITING [None]
